FAERS Safety Report 5526010-9 (Version None)
Quarter: 2007Q4

REPORT INFORMATION
  Report Type: 
  Country: None (occurrence: None)
  Receive Date: 20071126
  Receipt Date: 20071116
  Transmission Date: 20080405
  Serious: Yes (Hospitalization)
  Sender: FDA-Public Use
  Company Number: FR-BOEHRINGER INGELHEIM PHARMACEUTICALS, INC.-2007-FF-00550FF

PATIENT
  Age: 68 Year
  Sex: Male

DRUGS (5)
  1. SIFROL [Suspect]
     Indication: PARKINSON'S DISEASE
     Route: 048
     Dates: end: 20070505
  2. IRBESARTAN [Concomitant]
  3. BUFLOMEDIL [Concomitant]
  4. PLAVIX [Concomitant]
  5. BISOPROLOL FUMARATE [Concomitant]

REACTIONS (2)
  - BLOOD PROLACTIN INCREASED [None]
  - HYPONATRAEMIA [None]
